FAERS Safety Report 7714877-5 (Version None)
Quarter: 2011Q3

REPORT INFORMATION
  Report Type: 
  Country: None (occurrence: None)
  Receive Date: 20110810
  Receipt Date: 20110706
  Transmission Date: 20111222
  Serious: No
  Sender: FDA-Public Use
  Company Number: 1000022017

PATIENT
  Age: 61 Year
  Sex: Female

DRUGS (4)
  1. SAVELLA [Suspect]
     Indication: FIBROMYALGIA
     Dosage: 6.25 MG (6.25 MG, 1 IN 1 D), ORAL
     Route: 048
     Dates: start: 20110328, end: 20110401
  2. LEXAPRO (ESCITALOPRAM OXALATE) (10 MILLIGRAM, TABLETS) (ESCITALOPRAM O [Concomitant]
  3. SAVELLA [Suspect]
     Indication: FIBROMYALGIA
     Dosage: 25 MG (25 MG, 1 IN 1 D), ORAL
     Route: 048
     Dates: start: 20110401, end: 20110401
  4. ESTRADIOL (POULTICE OR PATCH) [Concomitant]

REACTIONS (2)
  - DRUG INEFFECTIVE [None]
  - HOT FLUSH [None]
